FAERS Safety Report 9190733 (Version 2)
Quarter: 2013Q2

REPORT INFORMATION
  Report Type: Report from Study
  Country: US (occurrence: US)
  Receive Date: 20130326
  Receipt Date: 20130403
  Transmission Date: 20140414
  Serious: Yes (Death, Hospitalization)
  Sender: FDA-Public Use
  Company Number: US-ROCHE-1206622

PATIENT
  Sex: Female
  Weight: 75.36 kg

DRUGS (1)
  1. XOLAIR [Suspect]
     Indication: PRODUCT USED FOR UNKNOWN INDICATION
     Dosage: MOST RECENT DOSE ON 04/MAR/2013.
     Route: 065
     Dates: start: 20090810

REACTIONS (7)
  - Lobar pneumonia [Fatal]
  - Chronic obstructive pulmonary disease [Fatal]
  - Acute respiratory failure [Fatal]
  - Asthma [Fatal]
  - Pulmonary arterial hypertension [Unknown]
  - Hypertension [Unknown]
  - Sleep apnoea syndrome [Unknown]
